FAERS Safety Report 18680482 (Version 1)
Quarter: 2020Q4

REPORT INFORMATION
  Report Type: Report from Study
  Country: US (occurrence: US)
  Receive Date: 20201229
  Receipt Date: 20201229
  Transmission Date: 20210114
  Serious: No
  Sender: FDA-Public Use
  Company Number: US-CLOVIS ONCOLOGY-CLO-2020-001407

PATIENT
  Sex: Female
  Weight: 60.77 kg

DRUGS (3)
  1. RUBRACA [Suspect]
     Active Substance: RUCAPARIB CAMSYLATE
     Indication: OVARIAN CANCER STAGE III
     Dosage: 600 MG, BID
     Route: 048
     Dates: start: 20200303
  2. RUBRACA [Suspect]
     Active Substance: RUCAPARIB CAMSYLATE
     Dosage: 600 MG, BID
     Route: 048
     Dates: start: 20200206, end: 2020
  3. RUBRACA [Suspect]
     Active Substance: RUCAPARIB CAMSYLATE
     Indication: OVARIAN CANCER
     Dosage: 600 MG, BID
     Route: 048
     Dates: start: 20200206

REACTIONS (5)
  - Hand-foot-and-mouth disease [Unknown]
  - Sunburn [Not Recovered/Not Resolved]
  - Pain in extremity [Unknown]
  - Sunburn [Unknown]
  - Blood urine present [Unknown]

NARRATIVE: CASE EVENT DATE: 2020
